FAERS Safety Report 9097282 (Version 1)
Quarter: 2013Q1

REPORT INFORMATION
  Report Type: Spontaneous
  Country: FR (occurrence: FR)
  Receive Date: 20130212
  Receipt Date: 20130212
  Transmission Date: 20140127
  Serious: Yes (Hospitalization)
  Sender: FDA-Public Use
  Company Number: PHHY2013FR012519

PATIENT
  Age: 64 Year
  Sex: Female

DRUGS (8)
  1. ANAFRANIL [Suspect]
     Dosage: 75 MG, QD
     Route: 048
     Dates: start: 2012, end: 20130111
  2. PAROXETINE [Suspect]
     Dosage: 10 MG, QD
     Route: 048
     Dates: start: 2012, end: 20130111
  3. SERESTA [Concomitant]
     Dosage: 10 MG, DAILY
  4. NEBIVOLOL [Concomitant]
     Dosage: 5 MG, DAILY
  5. FEMARA [Concomitant]
     Dosage: 1 DF, DAILY
  6. SPIRONOLACTONE [Concomitant]
     Dosage: 50 MG, DAILY
  7. TOPALGIC [Concomitant]
     Dosage: 200 MG, DAILY
  8. FORLAX [Concomitant]
     Dosage: 1 DF, DAILY

REACTIONS (5)
  - Interstitial lung disease [Recovered/Resolved]
  - Pyrexia [Unknown]
  - Dyspnoea [Unknown]
  - Inflammation [Unknown]
  - Eosinophilia [Unknown]
